FAERS Safety Report 22534531 (Version 3)
Quarter: 2023Q2

REPORT INFORMATION
  Report Type: Spontaneous
  Country: US (occurrence: US)
  Receive Date: 20230608
  Receipt Date: 20230614
  Transmission Date: 20230722
  Serious: Yes (Other)
  Sender: FDA-Public Use
  Company Number: US-PFIZER INC-202300210207

PATIENT
  Age: 15 Year
  Sex: Female
  Weight: 40.82 kg

DRUGS (1)
  1. GENOTROPIN [Suspect]
     Active Substance: SOMATROPIN
     Indication: Hypopituitarism
     Dosage: 1.8 MG, [6 DAYS A WEEK]

REACTIONS (6)
  - Drug dose omission by device [Unknown]
  - Poor quality device used [Unknown]
  - Wrong technique in device usage process [Unknown]
  - Device leakage [Unknown]
  - Device breakage [Unknown]
  - Device malfunction [Unknown]

NARRATIVE: CASE EVENT DATE: 20230601
